FAERS Safety Report 5608077-2 (Version None)
Quarter: 2008Q1

REPORT INFORMATION
  Report Type: 
  Country: None (occurrence: None)
  Receive Date: 20080130
  Receipt Date: 20080117
  Transmission Date: 20080703
  Serious: Yes (Hospitalization)
  Sender: FDA-Public Use
  Company Number: CH-ASTRAZENECA-2008PK00141

PATIENT
  Age: 72 Year
  Sex: Male
  Weight: 56 kg

DRUGS (8)
  1. NEXIUM [Suspect]
     Route: 048
     Dates: end: 20071104
  2. SIMCORA [Suspect]
     Indication: HYPERLIPIDAEMIA
     Route: 048
     Dates: start: 19970101, end: 20071104
  3. FELDEN [Concomitant]
     Dates: end: 20071104
  4. INHIBACA PLUS [Concomitant]
     Dosage: 12.5/5 MG DAILY
     Route: 048
     Dates: end: 20071104
  5. MEPHANOL [Concomitant]
     Route: 048
     Dates: end: 20071104
  6. TOREM [Concomitant]
     Route: 048
     Dates: end: 20071104
  7. MARCUMAR [Concomitant]
  8. BILOL [Concomitant]
     Route: 048

REACTIONS (2)
  - RENAL FAILURE ACUTE [None]
  - RHABDOMYOLYSIS [None]
